FAERS Safety Report 12082989 (Version 1)
Quarter: 2016Q1

REPORT INFORMATION
  Report Type: Spontaneous
  Country: US (occurrence: None)
  Receive Date: 20160216
  Receipt Date: 20160216
  Transmission Date: 20160526
  Serious: No
  Sender: FDA-Public Use
  Company Number: None

PATIENT
  Age: 19 Year
  Sex: Female

DRUGS (1)
  1. RAPAMUNE [Suspect]
     Active Substance: SIROLIMUS
     Indication: TONGUE OEDEMA
     Route: 048

REACTIONS (3)
  - Swollen tongue [None]
  - Incorrect drug administration duration [None]
  - Off label use [None]

NARRATIVE: CASE EVENT DATE: 20160212
